FAERS Safety Report 7829729-X (Version None)
Quarter: 2011Q4

REPORT INFORMATION
  Report Type: 
  Country: None (occurrence: None)
  Receive Date: 20111018
  Receipt Date: 20111003
  Transmission Date: 20120403
  Serious: Yes (Hospitalization, Disabling, Other)
  Sender: FDA-Public Use
  Company Number: 2010AL001715

PATIENT
  Sex: Female
  Weight: 68.0396 kg

DRUGS (78)
  1. ACETAMINOPHEN AND OXYCODONE HCL [Concomitant]
  2. ALBUTEROL [Concomitant]
  3. AMITRIPTYLINE HCL [Concomitant]
  4. CEFACLOR [Concomitant]
  5. FEXOFENADINE [Concomitant]
  6. MACROBID [Concomitant]
  7. PHENTERMINE [Concomitant]
  8. RANITIDINE [Concomitant]
  9. SPIRIVA [Concomitant]
  10. ZITHROMAX [Concomitant]
  11. LEXAPRO [Concomitant]
  12. DIFLUCAN [Concomitant]
  13. PREVACID [Concomitant]
  14. IMODIUM [Concomitant]
  15. ALPRAZOLAM [Concomitant]
  16. CIPROFLOXACIN [Concomitant]
  17. LISINOPRIL [Concomitant]
  18. NEXIUM [Concomitant]
  19. PREDNISONE [Concomitant]
  20. PROPOXYPHENE NAPSYLATE [Concomitant]
  21. PROPULSID [Concomitant]
  22. METOCLOPRAMIDE [Suspect]
     Indication: GASTROOESOPHAGEAL REFLUX DISEASE
     Dosage: 10 MG;QID;PO
     Route: 048
     Dates: start: 19970909, end: 20091101
  23. METOCLOPRAMIDE [Suspect]
     Indication: DIABETIC GASTROPARESIS
     Dosage: 10 MG;QID;PO
     Route: 048
     Dates: start: 19970909, end: 20091101
  24. CETIRIZINE HCL [Concomitant]
  25. CLARINES [Concomitant]
  26. PROZAC [Concomitant]
  27. DARVOCET [Concomitant]
  28. ZYRTEC [Concomitant]
  29. LINEZOLID [Concomitant]
  30. COGENTIN [Concomitant]
  31. BENADRYL [Concomitant]
  32. BENZONATATE [Concomitant]
  33. DOXYCYCLINE [Concomitant]
  34. LEVOXYL [Concomitant]
  35. LIPITOR [Concomitant]
  36. METFORMIN HCL [Concomitant]
  37. SINGULAIR [Concomitant]
  38. SULFAMETHOXAZOLE AND TRIMETHOPRIM [Concomitant]
  39. VASOTEC [Concomitant]
  40. HALDOL [Concomitant]
  41. KEFLEX [Concomitant]
  42. IBUPROFEN [Concomitant]
  43. CEFPODOXIME PROXETIL [Concomitant]
  44. AMOXICILLIN [Concomitant]
  45. BROMPLEX [Concomitant]
  46. CEPHALEXIN [Concomitant]
  47. DURATUSS [Concomitant]
  48. ESTRATEST [Concomitant]
  49. METHYLDOPA [Concomitant]
  50. LORAZEPAM [Concomitant]
  51. MYCELEX [Concomitant]
  52. TETRACYCLINE [Concomitant]
  53. THEOPHYLLINE [Concomitant]
  54. LEVAQUIN [Concomitant]
  55. CEFEPIME [Concomitant]
  56. ANTIBIOTICS [Concomitant]
  57. FLUCONAZOLE [Concomitant]
  58. METHYLPREDNISOLONE [Concomitant]
  59. SERTRALINE [Concomitant]
  60. VANCENASE [Concomitant]
  61. AZITHROMYCIN [Concomitant]
  62. CHANTIX [Concomitant]
  63. ZOCOR [Concomitant]
  64. ZOLOFT [Concomitant]
  65. CEFPROZIL [Concomitant]
  66. CEFTIN [Concomitant]
  67. COUMADIN [Concomitant]
  68. DOC-Q-LACE [Concomitant]
  69. FUROSEMIDE [Concomitant]
  70. GUAIFENESIN [Concomitant]
  71. HUMULIN R [Concomitant]
  72. MUCINEX [Concomitant]
  73. NAPROXEN [Concomitant]
  74. NASONEX [Concomitant]
  75. PRILOSEC [Concomitant]
  76. PHENERGEN [Concomitant]
  77. GLUCOPHAGE [Concomitant]
  78. DEMEROL [Concomitant]

REACTIONS (59)
  - MULTIPLE INJURIES [None]
  - DIABETIC NEUROPATHY [None]
  - DIZZINESS [None]
  - DUODENITIS [None]
  - ANXIETY [None]
  - MENTAL DISORDER [None]
  - MUSCULAR WEAKNESS [None]
  - SLEEP DISORDER [None]
  - VOMITING [None]
  - CONTUSION [None]
  - LEUKOCYTOSIS [None]
  - HYPOMAGNESAEMIA [None]
  - ARTHRALGIA [None]
  - SINUSITIS [None]
  - DEPRESSION [None]
  - EARLY SATIETY [None]
  - VERTIGO [None]
  - MENTAL STATUS CHANGES [None]
  - RIB FRACTURE [None]
  - EXTRAPYRAMIDAL DISORDER [None]
  - ACTIVITIES OF DAILY LIVING IMPAIRED [None]
  - DEFORMITY [None]
  - DYSTONIA [None]
  - PLEURISY [None]
  - FALL [None]
  - DYSPEPSIA [None]
  - HYPERLIPIDAEMIA [None]
  - GASTRIC DISORDER [None]
  - PAIN [None]
  - TONGUE DISORDER [None]
  - FATIGUE [None]
  - DYSPNOEA [None]
  - DRY MOUTH [None]
  - GLOSSODYNIA [None]
  - RESPIRATORY TRACT CONGESTION [None]
  - TREATMENT NONCOMPLIANCE [None]
  - ASTHENIA [None]
  - DECUBITUS ULCER [None]
  - ARTHRITIS [None]
  - HYPOGLYCAEMIA [None]
  - GASTRITIS [None]
  - SPEECH DISORDER [None]
  - GASTROOESOPHAGEAL REFLUX DISEASE [None]
  - URINARY TRACT INFECTION [None]
  - COUGH [None]
  - CHOKING [None]
  - DYSARTHRIA [None]
  - UPPER RESPIRATORY TRACT INFECTION [None]
  - AREFLEXIA [None]
  - PHARYNGITIS [None]
  - DYSPHAGIA [None]
  - NAUSEA [None]
  - BALANCE DISORDER [None]
  - OBESITY [None]
  - NERVOUS SYSTEM DISORDER [None]
  - TARDIVE DYSKINESIA [None]
  - FUNGAL INFECTION [None]
  - JOINT SWELLING [None]
  - HYPOKALAEMIA [None]
